FAERS Safety Report 8683380 (Version 2)
Quarter: 2013Q4

REPORT INFORMATION
  Report Type: Spontaneous
  Country: US (occurrence: US)
  Receive Date: 20120726
  Receipt Date: 20131031
  Transmission Date: 20140711
  Serious: No
  Sender: FDA-Public Use
  Company Number: US-009507513-2012SP034074

PATIENT
  Age: 18 Year
  Sex: Male

DRUGS (2)
  1. PEGINTRON [Suspect]
     Indication: HEPATITIS C
     Dosage: 1 DF, UNK
     Route: 058
     Dates: start: 2012
  2. REBETOL [Suspect]

REACTIONS (2)
  - Headache [Recovering/Resolving]
  - Pyrexia [Recovering/Resolving]
